FAERS Safety Report 17604652 (Version 7)
Quarter: 2021Q2

REPORT INFORMATION
  Report Type: Spontaneous
  Country: US (occurrence: US)
  Receive Date: 20200331
  Receipt Date: 20210427
  Transmission Date: 20210716
  Serious: Yes (Other)
  Sender: FDA-Public Use
  Company Number: US-PFIZER INC-2020131655

PATIENT
  Age: 72 Year
  Sex: Female

DRUGS (2)
  1. XELJANZ XR [Suspect]
     Active Substance: TOFACITINIB CITRATE
     Indication: RHEUMATOID ARTHRITIS
     Dosage: 11 MG, DAILY
     Route: 048
     Dates: start: 20200206
  2. PREDNISONE. [Concomitant]
     Active Substance: PREDNISONE
     Dosage: UNK

REACTIONS (28)
  - Depression [Unknown]
  - Cardiac discomfort [Unknown]
  - Gastric disorder [Unknown]
  - Burning sensation [Unknown]
  - Pain [Unknown]
  - Diarrhoea [Not Recovered/Not Resolved]
  - Lung disorder [Unknown]
  - Vomiting [Recovered/Resolved]
  - Paraesthesia [Unknown]
  - Pain in extremity [Unknown]
  - Condition aggravated [Unknown]
  - Insomnia [Unknown]
  - Peripheral swelling [Unknown]
  - Dyspepsia [Unknown]
  - Abdominal distension [Unknown]
  - Arthralgia [Recovered/Resolved]
  - Nausea [Recovered/Resolved]
  - Somnolence [Recovering/Resolving]
  - Muscle spasms [Unknown]
  - Therapeutic product effect incomplete [Unknown]
  - Neck pain [Recovered/Resolved]
  - Pyrexia [Recovered/Resolved]
  - Dizziness [Unknown]
  - Asthenia [Unknown]
  - Weight increased [Unknown]
  - Increased appetite [Unknown]
  - Herpes zoster [Recovering/Resolving]
  - Pruritus [Unknown]

NARRATIVE: CASE EVENT DATE: 2020
